FAERS Safety Report 6449984-0 (Version None)
Quarter: 2009Q4

REPORT INFORMATION
  Report Type: 
  Country: None (occurrence: None)
  Receive Date: 20091120
  Receipt Date: 20091120
  Transmission Date: 20100525
  Serious: Yes (Other)
  Sender: FDA-Public Use
  Company Number: None

PATIENT
  Age: 48 Year
  Sex: Female
  Weight: 51.7101 kg

DRUGS (1)
  1. CITALOPRAM HYDROBROMIDE [Suspect]
     Indication: POST-TRAUMATIC STRESS DISORDER
     Dosage: 10MG  QDAY PO
     Route: 048
     Dates: start: 20091117, end: 20091118

REACTIONS (3)
  - HEADACHE [None]
  - INSOMNIA [None]
  - PRODUCT SUBSTITUTION ISSUE [None]
